FAERS Safety Report 4727193-0 (Version None)
Quarter: 2005Q3

REPORT INFORMATION
  Report Type: 
  Country: None (occurrence: None)
  Receive Date: 20050728
  Receipt Date: 20050721
  Transmission Date: 20060218
  Serious: Yes (Hospitalization)
  Sender: FDA-Public Use
  Company Number: 2005SE04244

PATIENT
  Age: 38 Year
  Sex: Female

DRUGS (4)
  1. BLOPRESS TABLETS 4 [Suspect]
     Indication: HYPERTENSION
     Route: 048
     Dates: end: 20050601
  2. BLOPRESS TABLETS 4 [Suspect]
     Route: 048
     Dates: start: 20050601, end: 20050601
  3. MESALAMINE [Concomitant]
     Dates: end: 20050601
  4. ANTIBIOTIC [Concomitant]
     Dates: end: 20050601

REACTIONS (1)
  - NEPHRITIS INTERSTITIAL [None]
